FAERS Safety Report 6676311-6 (Version None)
Quarter: 2010Q2

REPORT INFORMATION
  Report Type: 
  Country: None (occurrence: None)
  Receive Date: 20100412
  Receipt Date: 20100330
  Transmission Date: 20101027
  Serious: No
  Sender: FDA-Public Use
  Company Number: US-B.I. PHARMACEUTICALS,INC./RIDGEFIELD-2010-BP-03174BP

PATIENT
  Sex: Female

DRUGS (15)
  1. SPIRIVA [Suspect]
     Indication: LUNG DISORDER
     Dosage: 18 MCG
     Route: 055
     Dates: start: 20070401
  2. TRAVATAN Z [Concomitant]
     Indication: GLAUCOMA
     Route: 031
  3. SYNTHROID [Concomitant]
     Dosage: 50 MG
  4. PRILOSEC [Concomitant]
     Dosage: 80 MG
  5. LISINOPRIL [Concomitant]
     Dosage: 20 MG
  6. ASPIRIN [Concomitant]
     Dosage: 81 MG
  7. ATIVAN [Concomitant]
     Dosage: 0.5 MG
  8. FOSAMAS [Concomitant]
  9. ASTELIN [Concomitant]
  10. METOPROLOL TARTRATE [Concomitant]
     Dosage: 100 MG
  11. DIPHENOXLYLATE W ATROP [Concomitant]
  12. OPC SYNERGY [Concomitant]
  13. CALCIUM +  D [Concomitant]
  14. FISH OIL [Concomitant]
     Dosage: 100 MG
  15. DAVINCI MULTIPLE VITAMIN [Concomitant]

REACTIONS (4)
  - ERYTHEMA OF EYELID [None]
  - EYE IRRITATION [None]
  - EYE PRURITUS [None]
  - OCULAR HYPERAEMIA [None]
